FAERS Safety Report 9442274 (Version 1)
Quarter: 2013Q3

REPORT INFORMATION
  Report Type: Spontaneous
  Country: US (occurrence: None)
  Receive Date: 20130805
  Receipt Date: 20130805
  Transmission Date: 20140515
  Serious: No
  Sender: FDA-Public Use
  Company Number: None

PATIENT
  Age: 77 None
  Sex: Male

DRUGS (3)
  1. DICLOFENAC SODIUM [Suspect]
     Indication: ARTHRITIS
     Dosage: 2 DAILY  BY MOUTH
     Route: 048
     Dates: start: 20130523, end: 20130622
  2. FISH OIL TABLETS [Concomitant]
  3. ASPIRIN [Concomitant]

REACTIONS (4)
  - Arthralgia [None]
  - Arthralgia [None]
  - Arthritis [None]
  - Inflammation [None]
